FAERS Safety Report 10594836 (Version 1)
Quarter: 2014Q4

REPORT INFORMATION
  Report Type: Spontaneous
  Country: VN (occurrence: VN)
  Receive Date: 20141120
  Receipt Date: 20141120
  Transmission Date: 20150529
  Serious: Yes (Hospitalization, Disabling)
  Sender: FDA-Public Use
  Company Number: VN-009507513-1411VNM006275

PATIENT
  Age: 81 Year
  Sex: Female
  Weight: 50 kg

DRUGS (1)
  1. FOSAMAX PLUS D [Suspect]
     Active Substance: ALENDRONATE SODIUM\CHOLECALCIFEROL
     Dosage: 1 DF, QW(STRENGTH: 2800, UNITS  NOT PROVIDED)
     Route: 048
     Dates: start: 20140611

REACTIONS (4)
  - Malaise [Unknown]
  - Back pain [Unknown]
  - Gastric ulcer [Unknown]
  - Abasia [Unknown]

NARRATIVE: CASE EVENT DATE: 2014
